FAERS Safety Report 7461648-3 (Version None)
Quarter: 2011Q2

REPORT INFORMATION
  Report Type: 
  Country: None (occurrence: None)
  Receive Date: 20110506
  Receipt Date: 20110425
  Transmission Date: 20111010
  Serious: Yes (Life-Threatening)
  Sender: FDA-Public Use
  Company Number: GB-KINGPHARMUSA00001-K201100515

PATIENT
  Age: 18 Year
  Sex: Female

DRUGS (1)
  1. AVINZA [Suspect]
     Dosage: UNK

REACTIONS (1)
  - CARDIAC ARREST [None]
